FAERS Safety Report 11459699 (Version 5)
Quarter: 2016Q2

REPORT INFORMATION
  Report Type: Report from Study
  Country: BR (occurrence: BR)
  Receive Date: 20150904
  Receipt Date: 20160420
  Transmission Date: 20160815
  Serious: Yes (Hospitalization, Other)
  Sender: FDA-Public Use
  Company Number: BR-ABBVIE-14K-020-1304121-00

PATIENT
  Age: 57 Year
  Sex: Female
  Weight: 84 kg

DRUGS (22)
  1. ROXFLAN [Concomitant]
     Active Substance: AMLODIPINE BESYLATE
     Indication: HYPERTENSION
     Route: 048
     Dates: start: 20141020
  2. AMLODIPINE BESYLATE. [Concomitant]
     Active Substance: AMLODIPINE BESYLATE
     Indication: CARDIAC DISORDER
     Dosage: HALF TABLET DAILY
     Dates: start: 201410
  3. GLIFAGE [Concomitant]
     Active Substance: METFORMIN HYDROCHLORIDE
     Indication: DIABETES MELLITUS
     Dosage: AFTER LUNCH
     Route: 048
     Dates: start: 2013
  4. DEFLAZACORT/ACECLOFENATE/RANITIDINE/CYCLOBENZAPRINE [Concomitant]
     Indication: RHEUMATIC DISORDER
     Dosage: DEFLAZACORT 7.5MG/ACECLOFENATE100MG/RANITIDINE150MG/CYCLOBENZAPRINE7MG
     Route: 048
     Dates: start: 2012
  5. HYDROXYCHLOROQUINE+NIMESULIDE+RANITIDINE+DIACEREIN (MAGISTRAL FORMULA) [Concomitant]
     Indication: ARTHRITIS
     Dosage: IN THE MORNING
     Route: 048
     Dates: start: 201104
  6. OMEPRAZOLE. [Concomitant]
     Active Substance: OMEPRAZOLE
     Indication: PROPHYLAXIS
     Route: 048
     Dates: start: 2012
  7. VITAMIN D [Concomitant]
     Active Substance: CHOLECALCIFEROL
     Indication: BONE DISORDER
     Route: 048
     Dates: start: 201404
  8. SODIUM METHOTREXATE [Concomitant]
     Active Substance: METHOTREXATE SODIUM
     Indication: RHEUMATIC DISORDER
     Dates: start: 2012
  9. LOSARTAN. [Concomitant]
     Active Substance: LOSARTAN
     Indication: HYPERTENSION
     Route: 048
     Dates: start: 2010
  10. FLUOXETINE [Concomitant]
     Active Substance: FLUOXETINE HYDROCHLORIDE
     Indication: ANXIETY
     Route: 048
     Dates: start: 201104
  11. VIMOVO [Concomitant]
     Active Substance: ESOMEPRAZOLE MAGNESIUM\NAPROXEN
     Indication: PAIN
     Dosage: 500 MG + 20 MG
     Route: 048
     Dates: start: 201402
  12. METHOTREXATE [Concomitant]
     Active Substance: METHOTREXATE
     Indication: RHEUMATIC DISORDER
     Route: 048
  13. HUMIRA [Suspect]
     Active Substance: ADALIMUMAB
     Route: 058
     Dates: start: 201505, end: 20150522
  14. HUMIRA [Suspect]
     Active Substance: ADALIMUMAB
     Indication: RHEUMATOID ARTHRITIS
     Route: 058
     Dates: start: 20130330, end: 201505
  15. MIRTAZAPINE. [Concomitant]
     Active Substance: MIRTAZAPINE
     Indication: ANXIOLYTIC THERAPY
  16. ACETYLSALICYLIC ACID [Concomitant]
     Active Substance: ASPIRIN
     Indication: ANTICOAGULANT THERAPY
     Route: 048
     Dates: start: 201404
  17. DEFLAZACORT/RANITIDINE/HYDROXICHLOROQUINE/KETOPROFEN [Concomitant]
     Indication: ARTHRITIS
     Dosage: DEFLAZACORT 6MG/RANITIDINE150MG/HYDROXICHLOROQUINE200MG/KETOPROFEN150MG/DIACEREINE 80MG
     Route: 048
     Dates: start: 2012
  18. CHOLECALCIFEROL [Concomitant]
     Active Substance: CHOLECALCIFEROL
     Indication: OSTEOPOROSIS
     Route: 048
     Dates: start: 201601
  19. HUMIRA [Suspect]
     Active Substance: ADALIMUMAB
     Route: 058
  20. MIRTAZAPINE. [Concomitant]
     Active Substance: MIRTAZAPINE
     Indication: SLEEP DISORDER THERAPY
     Route: 048
     Dates: start: 201501
  21. GLIFAGE [Concomitant]
     Active Substance: METFORMIN HYDROCHLORIDE
     Indication: BLOOD GLUCOSE
  22. OMEPRAZOLE. [Concomitant]
     Active Substance: OMEPRAZOLE
     Indication: GASTRIC DISORDER
     Route: 048
     Dates: start: 2011

REACTIONS (25)
  - Asthenia [Not Recovered/Not Resolved]
  - Anaemia [Recovering/Resolving]
  - Weight increased [Recovered/Resolved]
  - Blood pressure fluctuation [Recovered/Resolved]
  - Pain in extremity [Recovering/Resolving]
  - Weight increased [Recovered/Resolved]
  - Asthenia [Unknown]
  - Vomiting [Unknown]
  - Blood creatinine abnormal [Unknown]
  - Pain in extremity [Recovering/Resolving]
  - Influenza [Unknown]
  - Procedural vomiting [Not Recovered/Not Resolved]
  - Procedural pain [Not Recovered/Not Resolved]
  - Post procedural complication [Unknown]
  - Procedural nausea [Unknown]
  - Musculoskeletal pain [Recovering/Resolving]
  - Dengue fever [Recovered/Resolved]
  - Feeling abnormal [Not Recovered/Not Resolved]
  - Pain [Recovering/Resolving]
  - Weight decreased [Unknown]
  - Vitamin D deficiency [Unknown]
  - Hypophagia [Unknown]
  - Feeding disorder [Not Recovered/Not Resolved]
  - Pancreatic steatosis [Recovering/Resolving]
  - Arthralgia [Recovering/Resolving]

NARRATIVE: CASE EVENT DATE: 201401
